FAERS Safety Report 5862103-4 (Version None)
Quarter: 2008Q3

REPORT INFORMATION
  Report Type: 
  Country: None (occurrence: None)
  Receive Date: 20080827
  Receipt Date: 20080827
  Transmission Date: 20090109
  Serious: No
  Sender: FDA-Public Use
  Company Number: None

PATIENT
  Age: 46 Year
  Sex: Female

DRUGS (10)
  1. ISONIAZID [Suspect]
     Dates: start: 20061020, end: 20070718
  2. PREDNISONE TAB [Concomitant]
  3. THEOPHYLLINE [Concomitant]
  4. ADVAIR DISKUS 100/50 [Concomitant]
  5. NORVASC [Concomitant]
  6. ZOVIRAX [Concomitant]
  7. REGLAN [Concomitant]
  8. LEVAQUIN [Concomitant]
  9. CLARITHROMYCIN [Concomitant]
  10. DICLOFENAC [Concomitant]

REACTIONS (3)
  - HEPATIC NECROSIS [None]
  - PRURITUS [None]
  - VIRAL INFECTION [None]
